FAERS Safety Report 15478926 (Version 4)
Quarter: 2018Q4

REPORT INFORMATION
  Report Type: Spontaneous
  Country: BR (occurrence: BR)
  Receive Date: 20181009
  Receipt Date: 20181219
  Transmission Date: 20190205
  Serious: Yes (Hospitalization, Other)
  Sender: FDA-Public Use
  Company Number: BR-SA-2018SA275382

PATIENT
  Age: 68 Year
  Sex: Male
  Weight: 72 kg

DRUGS (6)
  1. LANTUS [Suspect]
     Active Substance: INSULIN GLARGINE
     Dosage: 12 IU, TID
     Route: 058
  2. JARDIANCE [Concomitant]
     Active Substance: EMPAGLIFLOZIN
     Indication: DIABETES MELLITUS
     Dosage: UNK, QD
     Dates: start: 201808
  3. LANTUS [Suspect]
     Active Substance: INSULIN GLARGINE
     Indication: DIABETES MELLITUS
     Dosage: 14 IU, TID
     Route: 058
     Dates: start: 2015, end: 201808
  4. TRAYENTA [Concomitant]
     Active Substance: LINAGLIPTIN
     Indication: DIABETES MELLITUS
     Dosage: UNK
     Dates: start: 2015
  5. ELIQUIS [Concomitant]
     Active Substance: APIXABAN
     Indication: CEREBROVASCULAR ACCIDENT
     Dosage: UNK, Q12H
     Route: 065
  6. HUMALOG [Concomitant]
     Active Substance: INSULIN LISPRO
     Indication: DIABETES MELLITUS
     Dosage: UNK, TID
     Dates: start: 2015

REACTIONS (8)
  - Dyspnoea [Unknown]
  - Blood glucose increased [Recovered/Resolved]
  - Cerebrovascular accident [Unknown]
  - Cardiac valve disease [Unknown]
  - Facial paralysis [Not Recovered/Not Resolved]
  - Product use issue [Unknown]
  - Cerebrovascular accident [Recovered/Resolved with Sequelae]
  - Blood glucose fluctuation [Unknown]

NARRATIVE: CASE EVENT DATE: 201610
